FAERS Safety Report 6991785-9 (Version None)
Quarter: 2010Q3

REPORT INFORMATION
  Report Type: 
  Country: None (occurrence: None)
  Receive Date: 20100917
  Receipt Date: 20100907
  Transmission Date: 20110219
  Serious: No
  Sender: FDA-Public Use
  Company Number: US-PFIZER INC-2010094935

PATIENT
  Sex: Male

DRUGS (2)
  1. NICOTROL [Suspect]
     Dosage: UNK
     Dates: start: 20100523
  2. NICOTROL [Suspect]
     Dosage: UNK
     Dates: start: 20100727

REACTIONS (2)
  - DRUG INEFFECTIVE [None]
  - PRODUCT COLOUR ISSUE [None]
